FAERS Safety Report 5156096-5 (Version None)
Quarter: 2006Q4

REPORT INFORMATION
  Report Type: 
  Country: None (occurrence: None)
  Receive Date: 20061122
  Receipt Date: 20061113
  Transmission Date: 20070319
  Serious: Yes (Hospitalization)
  Sender: FDA-Public Use
  Company Number: PHRM2006FR03050

PATIENT
  Age: 62 Year
  Sex: Male

DRUGS (4)
  1. LIORESAL [Suspect]
     Indication: MUSCLE DISORDER
     Dosage: 300 MG, QD
     Route: 048
  2. ASPEGIC 1000 [Suspect]
     Indication: INJURY
     Dosage: 250 MG, QD
     Route: 048
  3. MIOREL [Suspect]
     Indication: MUSCLE DISORDER
     Route: 048
  4. TAHOR [Suspect]
     Indication: LIPID METABOLISM DISORDER
     Dosage: 20 MG, QD
     Route: 048

REACTIONS (1)
  - PANCREATITIS ACUTE [None]
